FAERS Safety Report 10461610 (Version 2)
Quarter: 2017Q4

REPORT INFORMATION
  Report Type: Report from Study
  Country: US (occurrence: US)
  Receive Date: 20140918
  Receipt Date: 20171024
  Transmission Date: 20180320
  Serious: Yes (Other)
  Sender: FDA-Public Use
  Company Number: US-ROCHE-1463136

PATIENT
  Sex: Male
  Weight: 31.5 kg

DRUGS (15)
  1. XOPENEX HFA [Concomitant]
     Active Substance: LEVALBUTEROL TARTRATE
     Route: 055
  2. NYSTATIN. [Concomitant]
     Active Substance: NYSTATIN
     Dosage: 100,000 UNIT/ML
     Route: 048
  3. BACTRIM DS [Concomitant]
     Active Substance: SULFAMETHOXAZOLE\TRIMETHOPRIM
     Dosage: 800 MG TO 160 MG
     Route: 048
  4. NUTROPIN AQ [Suspect]
     Active Substance: SOMATROPIN
     Indication: GROWTH HORMONE DEFICIENCY
     Route: 058
     Dates: end: 201312
  5. NUTROPIN AQ [Suspect]
     Active Substance: SOMATROPIN
     Route: 058
  6. LEVOTHYROXINE. [Concomitant]
     Active Substance: LEVOTHYROXINE
     Indication: HYPOTHYROIDISM
     Route: 048
  7. NASONEX [Concomitant]
     Active Substance: MOMETASONE FUROATE
  8. ALBUTEROL SULFATE. [Concomitant]
     Active Substance: ALBUTEROL SULFATE
     Dosage: 3-4 PUFFS
     Route: 065
  9. NASONEX [Concomitant]
     Active Substance: MOMETASONE FUROATE
     Route: 045
  10. NUTROPIN AQ [Suspect]
     Active Substance: SOMATROPIN
     Route: 058
  11. CLARITIN (UNITED STATES) [Concomitant]
  12. MONTELUCAST [Concomitant]
     Active Substance: MONTELUKAST SODIUM
     Dosage: CHEWABLE, AT BEDTIME
     Route: 048
  13. SINGULAIR [Concomitant]
     Active Substance: MONTELUKAST SODIUM
     Route: 048
  14. FLOVENT [Concomitant]
     Active Substance: FLUTICASONE PROPIONATE
  15. ADVAIR HFA [Concomitant]
     Active Substance: FLUTICASONE PROPIONATE\SALMETEROL XINAFOATE
     Dosage: 2 PUFFS
     Route: 065

REACTIONS (16)
  - Periorbital oedema [Unknown]
  - Sinusitis [Unknown]
  - Pain in extremity [Unknown]
  - Abdominal pain [Unknown]
  - Prealbumin decreased [Recovered/Resolved]
  - Nasal disorder [Unknown]
  - Asthma [Unknown]
  - Glycosylated haemoglobin increased [Unknown]
  - Fructosamine increased [Unknown]
  - Sinus disorder [Unknown]
  - Pyrexia [Unknown]
  - Hypoacusis [Unknown]
  - Ear infection [Unknown]
  - Headache [Unknown]
  - Cough [Unknown]
  - Erythema [Recovered/Resolved]
